FAERS Safety Report 5593318-0 (Version None)
Quarter: 2008Q1

REPORT INFORMATION
  Report Type: 
  Country: None (occurrence: None)
  Receive Date: 20080116
  Receipt Date: 20080110
  Transmission Date: 20080703
  Serious: Yes (Other)
  Sender: FDA-Public Use
  Company Number: B0502563A

PATIENT
  Age: 38 Year
  Sex: Female
  Weight: 74 kg

DRUGS (5)
  1. COMBIVIR [Suspect]
     Indication: HIV INFECTION
     Route: 048
     Dates: start: 20070808
  2. KALETRA [Suspect]
     Indication: HIV INFECTION
     Route: 048
     Dates: start: 20070808
  3. DEPAMIDE [Suspect]
     Indication: BIPOLAR DISORDER
     Dosage: 1200MG PER DAY
     Route: 048
     Dates: start: 20061001, end: 20070804
  4. SUSTIVA [Suspect]
     Indication: HIV INFECTION
     Route: 048
     Dates: start: 20070328, end: 20070808
  5. TRUVADA [Suspect]
     Indication: HIV INFECTION
     Route: 048
     Dates: start: 20070328, end: 20070808

REACTIONS (4)
  - CELL DEATH [None]
  - DRUG EXPOSURE DURING PREGNANCY [None]
  - HELLP SYNDROME [None]
  - PRE-ECLAMPSIA [None]
